FAERS Safety Report 7410230-2 (Version None)
Quarter: 2011Q2

REPORT INFORMATION
  Report Type: 
  Country: None (occurrence: None)
  Receive Date: 20110412
  Receipt Date: 20110330
  Transmission Date: 20111010
  Serious: Yes (Hospitalization)
  Sender: FDA-Public Use
  Company Number: US-WATSON-2011-04864

PATIENT
  Age: 2 Day
  Sex: Male

DRUGS (1)
  1. GENTAMICIN SULFATE [Suspect]
     Indication: PROPHYLAXIS
     Dosage: 0.3 %, SINGLE
     Route: 047

REACTIONS (1)
  - CELLULITIS [None]
